FAERS Safety Report 5272636-X (Version None)
Quarter: 2007Q1

REPORT INFORMATION
  Report Type: 
  Country: None (occurrence: None)
  Receive Date: 20061214
  Receipt Date: 20060818
  Transmission Date: 20070707
  Serious: Yes (Hospitalization, Other)
  Sender: FDA-Public Use
  Company Number: 2006103928

PATIENT
  Age: 48 Year
  Sex: Male
  Weight: 70.3075 kg

DRUGS (2)
  1. BEXTRA [Suspect]
     Indication: BACK INJURY
     Dosage: 20 MG (20 MG, 1 IN 1 D)
     Dates: start: 20031023, end: 20041220
  2. BEXTRA [Suspect]
     Indication: JOINT INJURY
     Dosage: 20 MG (20 MG, 1 IN 1 D)
     Dates: start: 20031023, end: 20041220

REACTIONS (1)
  - MYOCARDIAL INFARCTION [None]
